FAERS Safety Report 6170324-9 (Version None)
Quarter: 2009Q2

REPORT INFORMATION
  Report Type: 
  Country: None (occurrence: None)
  Receive Date: 20090428
  Receipt Date: 20090417
  Transmission Date: 20091009
  Serious: Yes (Hospitalization)
  Sender: FDA-Public Use
  Company Number: PFIZER INC-2008001621

PATIENT
  Sex: Male
  Weight: 118.82 kg

DRUGS (14)
  1. BLINDED *PLACEBO [Suspect]
     Indication: TRANSITIONAL CELL CARCINOMA
     Dosage: ONCE DAILY
     Route: 048
     Dates: start: 20070620, end: 20070803
  2. BLINDED SUNITINIB MALATE [Suspect]
     Indication: TRANSITIONAL CELL CARCINOMA
     Dosage: ONCE DAILY
     Route: 048
     Dates: start: 20070620, end: 20070803
  3. PACLITAXEL [Suspect]
     Indication: URETHRAL CANCER METASTATIC
     Dosage: 395 MG, ONCE
     Route: 042
     Dates: start: 20070817, end: 20070817
  4. GEMCITABINE [Suspect]
     Indication: URETHRAL CANCER METASTATIC
     Dosage: 2260 MG, ONCE
     Route: 042
     Dates: start: 20070817, end: 20070817
  5. MORPHINE SULFATE [Concomitant]
     Indication: TUMOUR PAIN
     Dosage: UNK
     Route: 048
     Dates: start: 20070817
  6. OMEPRAZOLE [Concomitant]
     Dosage: UNK
     Route: 048
     Dates: start: 20070523
  7. LIPITOR [Concomitant]
     Dosage: UNK
     Route: 048
     Dates: start: 20051104
  8. COMPAZINE [Concomitant]
     Dosage: UNK
     Route: 048
     Dates: start: 20061018, end: 20071011
  9. ALLOPURINOL [Concomitant]
     Dosage: UNK
     Route: 048
     Dates: start: 20051104
  10. NIFEDIPINE [Concomitant]
     Dosage: UNK
     Route: 048
     Dates: start: 20051104, end: 20070918
  11. VICODIN [Concomitant]
     Dosage: UNK
     Route: 048
     Dates: start: 20070705
  12. ASACOL [Concomitant]
     Dosage: UNK
     Route: 048
     Dates: start: 20051104
  13. NITROGLYCERIN [Concomitant]
     Dosage: UNK
     Route: 048
     Dates: start: 20051129
  14. SENNA [Concomitant]
     Dosage: UNK
     Route: 048
     Dates: start: 20070705, end: 20071011

REACTIONS (5)
  - FATIGUE [None]
  - HAEMOGLOBIN DECREASED [None]
  - HALLUCINATION [None]
  - MUSCULAR WEAKNESS [None]
  - RENAL FAILURE ACUTE [None]
